FAERS Safety Report 10716102 (Version 5)
Quarter: 2016Q2

REPORT INFORMATION
  Report Type: Report from Study
  Country: HU (occurrence: HU)
  Receive Date: 20150116
  Receipt Date: 20160414
  Transmission Date: 20160815
  Serious: Yes (Hospitalization)
  Sender: FDA-Public Use
  Company Number: PHHO2015HU000647

PATIENT
  Age: 69 Year
  Sex: Male
  Weight: 82 kg

DRUGS (8)
  1. ATORVASTATIN TEVA [Concomitant]
     Active Substance: ATORVASTATIN
     Indication: CARDIAC FAILURE CHRONIC
     Dosage: 20 MG, ONCE/SINGLE
     Route: 048
     Dates: start: 20060216
  2. TALLITON [Concomitant]
     Indication: CARDIAC FAILURE CHRONIC
     Dosage: 25 MG, BID
     Route: 048
     Dates: start: 20060216
  3. ACZ885 [Suspect]
     Active Substance: CANAKINUMAB
     Indication: CARDIOVASCULAR EVENT PROPHYLAXIS
     Dosage: 300 MG, A
     Route: 058
     Dates: start: 20131009, end: 20150107
  4. EZETROL [Concomitant]
     Active Substance: EZETIMIBE
     Indication: CARDIAC FAILURE CHRONIC
     Dosage: 10 MG, ONCE/SINGLE
     Route: 048
     Dates: start: 20060216
  5. ASPIRIN PROTECT [Concomitant]
     Active Substance: ASPIRIN
     Indication: CARDIAC FAILURE CHRONIC
     Dosage: 100 MG, ONCE
     Route: 048
     Dates: start: 20060216
  6. MILURIT [Concomitant]
     Active Substance: ALLOPURINOL
     Indication: HYPERTENSION
     Dosage: 100 MG, BID
     Route: 048
     Dates: start: 20141102
  7. PENTOXYL [Concomitant]
     Active Substance: PENTOXIFYLLINE
     Indication: CARDIAC FAILURE CHRONIC
     Dosage: 400 MG, BID
     Route: 048
     Dates: start: 20101118
  8. EDNYT HCT [Concomitant]
     Indication: HYPERTENSION
     Dosage: 12.5 MG, ONCE
     Route: 048
     Dates: start: 20060817

REACTIONS (3)
  - Prurigo [Recovered/Resolved]
  - Neurodermatitis [Recovered/Resolved]
  - Neurodermatitis [Recovering/Resolving]

NARRATIVE: CASE EVENT DATE: 201403
